FAERS Safety Report 4579146-3 (Version None)
Quarter: 2005Q1

REPORT INFORMATION
  Report Type: 
  Country: None (occurrence: None)
  Receive Date: 20050121
  Receipt Date: 20041203
  Transmission Date: 20050727
  Serious: Yes (Other)
  Sender: FDA-Public Use
  Company Number: STA-AE-04-MTX-2004

PATIENT
  Age: 57 Year
  Sex: Male

DRUGS (10)
  1. METHOTREXATE [Suspect]
     Dosage: 25 MG 1X PER WK
  2. ENBREL [Suspect]
     Indication: PSORIATIC ARTHROPATHY
     Dosage: 25 MG PER 1 WK
     Dates: start: 20040420
  3. AMBIEN [Concomitant]
  4. ZOCOR [Concomitant]
  5. HYTRIN [Concomitant]
  6. RISPERDAL [Concomitant]
  7. NAPOSYN (NAPROXEN) [Concomitant]
  8. FOLIC ACID [Concomitant]
  9. SEROQUEL [Concomitant]
  10. CORTICOSTEROID NOS (CORTICOSTEROID NOS) [Concomitant]

REACTIONS (1)
  - HERPES ZOSTER [None]
